FAERS Safety Report 7653088-9 (Version None)
Quarter: 2011Q3

REPORT INFORMATION
  Report Type: 
  Country: None (occurrence: None)
  Receive Date: 20110803
  Receipt Date: 20110728
  Transmission Date: 20111222
  Serious: Yes (Hospitalization)
  Sender: FDA-Public Use
  Company Number: JP-EISAI INC-E2090-01706-SPO-JP

PATIENT
  Sex: Male

DRUGS (15)
  1. FERROUS CITRATE [Concomitant]
     Route: 048
     Dates: start: 20090501, end: 20100426
  2. RISPERDAL [Concomitant]
     Route: 048
     Dates: start: 20050801, end: 20100426
  3. MYSTAN [Concomitant]
     Route: 048
     Dates: start: 20091201, end: 20100503
  4. HALOPERIDOL [Concomitant]
     Dosage: UNKNOWN
     Dates: start: 20100430
  5. ANTIBIOTIC UNSPECIFIED [Concomitant]
     Dates: start: 20100418, end: 20100426
  6. HALOSTAN [Concomitant]
     Route: 048
     Dates: start: 20050801, end: 20100426
  7. DEPAKENE [Concomitant]
     Route: 048
     Dates: start: 20050901, end: 20100426
  8. AKINETON [Concomitant]
     Dosage: UNKNOWN
     Dates: start: 20100430
  9. RISPERDAL [Concomitant]
     Dosage: UNKNOWN
     Route: 048
     Dates: start: 20100430
  10. TASMOLEN [Concomitant]
  11. ZONISAMIDE [Suspect]
     Route: 048
     Dates: start: 20100315, end: 20100426
  12. HALOSTAN [Concomitant]
  13. DEPAKENE [Concomitant]
     Dosage: DOSE UNKNOWN
     Route: 048
     Dates: start: 20100504
  14. MYSTAN [Concomitant]
     Dates: start: 20100504
  15. TASMOLEN [Concomitant]
     Route: 048
     Dates: start: 20050801, end: 20100426

REACTIONS (1)
  - DRUG RASH WITH EOSINOPHILIA AND SYSTEMIC SYMPTOMS [None]
